FAERS Safety Report 23629546 (Version 1)
Quarter: 2024Q1

REPORT INFORMATION
  Report Type: Spontaneous
  Country: AU (occurrence: AU)
  Receive Date: 20240314
  Receipt Date: 20240314
  Transmission Date: 20240410
  Serious: Yes (Other)
  Sender: FDA-Public Use
  Company Number: AU-TAKEDA-2024TUS021968

PATIENT
  Age: 43 Year
  Sex: Female

DRUGS (4)
  1. PONATINIB [Suspect]
     Active Substance: PONATINIB
     Indication: Chronic myeloid leukaemia
     Dosage: UNK
     Route: 065
  2. DASATINIB [Suspect]
     Active Substance: DASATINIB
     Indication: Chronic myeloid leukaemia
     Dosage: 50 MILLIGRAM
     Route: 065
  3. IMATINIB [Suspect]
     Active Substance: IMATINIB
     Indication: Chronic myeloid leukaemia
     Dosage: UNK
     Route: 065
  4. NILOTINIB [Suspect]
     Active Substance: NILOTINIB
     Indication: Chronic myeloid leukaemia
     Dosage: UNK
     Route: 065

REACTIONS (16)
  - Myocarditis [Unknown]
  - Cerebrovascular accident [Unknown]
  - Myocardial ischaemia [Unknown]
  - Pancreatitis [Unknown]
  - Cytogenetic analysis abnormal [Unknown]
  - Drug intolerance [Unknown]
  - Drug resistance [Unknown]
  - Toxicity to various agents [Unknown]
  - Vasospasm [Unknown]
  - Heart rate increased [Unknown]
  - Palpitations [Unknown]
  - Supraventricular tachycardia [Unknown]
  - Abdominal pain upper [Unknown]
  - Headache [Unknown]
  - Chest pain [Unknown]
  - Lipase increased [Recovered/Resolved]

NARRATIVE: CASE EVENT DATE: 20180301
